FAERS Safety Report 17981004 (Version 1)
Quarter: 2020Q3

REPORT INFORMATION
  Report Type: Spontaneous
  Country: DE (occurrence: DE)
  Receive Date: 20200704
  Receipt Date: 20200704
  Transmission Date: 20201103
  Serious: Yes (Hospitalization, Other)
  Sender: FDA-Public Use
  Company Number: NVSC2020DE150968

PATIENT
  Age: 41 Year
  Sex: Male

DRUGS (4)
  1. PHENPROCOUMON [Suspect]
     Active Substance: PHENPROCOUMON
     Indication: CORONARY ARTERY DISEASE
  2. METAMIZOLE [Suspect]
     Active Substance: METAMIZOLE
     Indication: TOOTHACHE
     Dosage: UNK
     Route: 048
  3. ACETYLSALICYLIC ACID [Suspect]
     Active Substance: ASPIRIN
     Indication: TOOTHACHE
     Dosage: UNK
     Route: 048
  4. PHENPROCOUMON [Suspect]
     Active Substance: PHENPROCOUMON
     Indication: ATRIAL FIBRILLATION
     Dosage: UNK
     Route: 065

REACTIONS (5)
  - Tooth socket haemorrhage [Unknown]
  - Haemorrhage [Unknown]
  - Upper airway obstruction [Unknown]
  - Coagulation factor decreased [Unknown]
  - Coagulopathy [Unknown]
